FAERS Safety Report 17734047 (Version 1)
Quarter: 2020Q2

REPORT INFORMATION
  Report Type: Spontaneous
  Country: US (occurrence: US)
  Receive Date: 20200501
  Receipt Date: 20200501
  Transmission Date: 20200714
  Serious: No
  Sender: FDA-Public Use
  Company Number: US-PFIZER INC-2020170980

PATIENT
  Age: 77 Year
  Sex: Female
  Weight: 49.9 kg

DRUGS (5)
  1. VITAMIN E [Concomitant]
     Active Substance: .ALPHA.-TOCOPHEROL
     Dosage: 400 IU, 2X/DAY (400UNITS; TAKE TWO DAILY BY MOUTH)
     Route: 048
  2. ELIQUIS [Concomitant]
     Active Substance: APIXABAN
     Indication: THROMBOSIS
     Dosage: 5 MG, 2X/DAY
     Route: 048
     Dates: start: 20200425
  3. CLINDAMYCIN HCL [Suspect]
     Active Substance: CLINDAMYCIN HYDROCHLORIDE
     Indication: PHARYNGITIS
     Dosage: 300 MG, 4X/DAY
     Route: 048
     Dates: start: 20200419
  4. FLUCONAZOLE. [Suspect]
     Active Substance: FLUCONAZOLE
     Indication: PHARYNGITIS
     Dosage: 100 MG, 1X/DAY, (TAKE ONE DAILY BY MOUTH FOR 21 DAYS)
     Route: 048
     Dates: start: 20200419
  5. PENTOXIFYLLINE. [Suspect]
     Active Substance: PENTOXIFYLLINE
     Indication: PHARYNGITIS
     Dosage: 400 MG, 3X/DAY (TAKE ONE THREE TIME DAILY BY MOUTH FOR 6 MONTHS)
     Route: 048
     Dates: start: 20200419

REACTIONS (1)
  - Drug ineffective [Not Recovered/Not Resolved]

NARRATIVE: CASE EVENT DATE: 20200419
